FAERS Safety Report 16871893 (Version 1)
Quarter: 2019Q4

REPORT INFORMATION
  Report Type: Report from Study
  Country: IT (occurrence: IT)
  Receive Date: 20191001
  Receipt Date: 20191001
  Transmission Date: 20200122
  Serious: Yes (Other)
  Sender: FDA-Public Use
  Company Number: IT-AUROBINDO-AUR-APL-2019-063171

PATIENT
  Age: 50 Year
  Sex: Male

DRUGS (6)
  1. TENOFOVIR DISOPROXIL [Suspect]
     Active Substance: TENOFOVIR DISOPROXIL
     Indication: HEPATITIS B
  2. LAMIVUDINE. [Suspect]
     Active Substance: LAMIVUDINE
     Indication: HEPATITIS B
     Dosage: 100 MILLIGRAM, ONCE A DAY
     Route: 065
  3. TENOFOVIR DISOPROXIL [Suspect]
     Active Substance: TENOFOVIR DISOPROXIL
     Indication: HEPATIC CIRRHOSIS
     Dosage: UNK
     Route: 065
  4. ADEFOVIR DIPIVOXIL. [Suspect]
     Active Substance: ADEFOVIR DIPIVOXIL
     Indication: HEPATITIS B
  5. LAMIVUDINE. [Suspect]
     Active Substance: LAMIVUDINE
     Indication: HEPATIC CIRRHOSIS
  6. ADEFOVIR DIPIVOXIL. [Suspect]
     Active Substance: ADEFOVIR DIPIVOXIL
     Indication: HEPATIC CIRRHOSIS
     Dosage: 10 MILLIGRAM, ONCE A DAY
     Route: 065

REACTIONS (2)
  - Pathogen resistance [Unknown]
  - Off label use [Unknown]
